FAERS Safety Report 5340419-8 (Version None)
Quarter: 2007Q2

REPORT INFORMATION
  Report Type: 
  Country: None (occurrence: None)
  Receive Date: 20070405
  Receipt Date: 20061221
  Transmission Date: 20071010
  Serious: No
  Sender: FDA-Public Use
  Company Number: US200612004049

PATIENT
  Sex: Male

DRUGS (5)
  1. CYMBALTA [Suspect]
     Dosage: 30 MG, DAILY (1/D)
     Dates: start: 20061220
  2. BETA BLOCKING AGENTS [Concomitant]
  3. ASPIRIN [Concomitant]
  4. MULTIVITAMIN [Concomitant]
  5. MELATONIN (MELATONIN) [Concomitant]

REACTIONS (10)
  - BLOOD PRESSURE INCREASED [None]
  - CONSTIPATION [None]
  - DECREASED APPETITE [None]
  - DRY MOUTH [None]
  - FATIGUE [None]
  - HYPERHIDROSIS [None]
  - NAUSEA [None]
  - SENSORY DISTURBANCE [None]
  - SOMNOLENCE [None]
  - STOMACH DISCOMFORT [None]
